FAERS Safety Report 12803041 (Version 1)
Quarter: 2016Q4

REPORT INFORMATION
  Report Type: Spontaneous
  Country: US (occurrence: US)
  Receive Date: 20161001
  Receipt Date: 20161001
  Transmission Date: 20170207
  Serious: Yes (Life-Threatening)
  Sender: FDA-Public Use
  Company Number: None

PATIENT
  Age: 5 Year
  Sex: Male
  Weight: 23.4 kg

DRUGS (1)
  1. MONTEKULAST SOD [Suspect]
     Active Substance: MONTELUKAST SODIUM
     Indication: ECZEMA
     Dosage: ?          QUANTITY:1 TABLET(S);?
     Route: 048
     Dates: start: 20160906, end: 20160921

REACTIONS (6)
  - Flat affect [None]
  - Suicidal ideation [None]
  - Depressed mood [None]
  - Irritability [None]
  - Anxiety [None]
  - Crying [None]

NARRATIVE: CASE EVENT DATE: 20160921
